FAERS Safety Report 13417751 (Version 2)
Quarter: 2017Q3

REPORT INFORMATION
  Report Type: Report from Study
  Country: US (occurrence: MX)
  Receive Date: 20170407
  Receipt Date: 20170719
  Transmission Date: 20171127
  Serious: Yes (Hospitalization, Other)
  Sender: FDA-Public Use
  Company Number: US-SUNOVION-2017SUN001449

PATIENT
  Age: 64 Year
  Sex: Female

DRUGS (13)
  1. COMBIVENT [Concomitant]
     Active Substance: ALBUTEROL SULFATE\IPRATROPIUM BROMIDE
  2. PROLIA [Concomitant]
     Active Substance: DENOSUMAB
  3. ELATEC [Concomitant]
  4. DIMOFLAX [Concomitant]
  5. VITAMIIN C [Concomitant]
     Active Substance: ASCORBIC ACID
  6. INDACATEROL AND GLYCOPYRROLATE [Suspect]
     Active Substance: GLYCOPYRROLATE\INDACATEROL MALEATE
     Indication: CHRONIC OBSTRUCTIVE PULMONARY DISEASE
     Dosage: 1 DF, QD
     Route: 065
  7. STILNOX [Concomitant]
     Active Substance: ZOLPIDEM TARTRATE
  8. ANGELIQ [Concomitant]
     Active Substance: DROSPIRENONE\ESTRADIOL
  9. DEXIVANT [Concomitant]
  10. SYMBICORT [Concomitant]
     Active Substance: BUDESONIDE\FORMOTEROL FUMARATE DIHYDRATE
  11. LEXOTAN [Concomitant]
     Active Substance: BROMAZEPAM
  12. CALTRATE [Concomitant]
     Active Substance: CALCIUM CARBONATE
  13. PROCORALAN [Concomitant]
     Active Substance: IVABRADINE

REACTIONS (19)
  - Benign breast neoplasm [Unknown]
  - Muscular weakness [Unknown]
  - Dyspepsia [Unknown]
  - Exercise tolerance decreased [Unknown]
  - Anxiety [Unknown]
  - Feeling abnormal [Unknown]
  - Panic attack [Unknown]
  - Tachycardia [Unknown]
  - Psychiatric symptom [Unknown]
  - Malaise [Unknown]
  - Depressed mood [Unknown]
  - Fatigue [Unknown]
  - Chronic obstructive pulmonary disease [Unknown]
  - Secondary immunodeficiency [Unknown]
  - Frustration tolerance decreased [Unknown]
  - Bronchial obstruction [Not Recovered/Not Resolved]
  - Breast mass [Unknown]
  - Depression [Unknown]
  - Insomnia [Unknown]

NARRATIVE: CASE EVENT DATE: 20170326
